FAERS Safety Report 7034557-1 (Version None)
Quarter: 2010Q4

REPORT INFORMATION
  Report Type: 
  Country: None (occurrence: None)
  Receive Date: 20101008
  Receipt Date: 20100927
  Transmission Date: 20110411
  Serious: Yes (Hospitalization, Other)
  Sender: FDA-Public Use
  Company Number: BR-NOVOPROD-315084

PATIENT
  Age: 84 Year
  Sex: Male
  Weight: 68 kg

DRUGS (8)
  1. LEVEMIR [Suspect]
     Indication: TYPE 2 DIABETES MELLITUS
     Dosage: 12 U, QD
     Route: 058
     Dates: start: 20100827
  2. LEVEMIR [Suspect]
     Dosage: 16U+4U
     Route: 058
     Dates: start: 20100902
  3. SIMVASTATIN [Concomitant]
     Indication: ELECTROLYTE SUBSTITUTION THERAPY
     Dosage: 20 MG, QD
     Route: 048
     Dates: start: 20100826
  4. DEXAMETHASONE [Concomitant]
     Indication: PROSTATE CANCER
     Dosage: 1.5 MG, QD
     Route: 048
     Dates: start: 20100602, end: 20100918
  5. METOPROLOL SUCCINATE [Concomitant]
     Indication: HYPERTENSION
     Dosage: 100 MG, QD
     Route: 048
     Dates: start: 20080101
  6. LOSARTAN + HIDROCLOROTIAZIDA [Concomitant]
     Indication: HYPERTENSION
     Dosage: 50 + 12.5 MG / ORAL
     Route: 048
     Dates: start: 20081020
  7. METFORMIN HYDROCHLORIDE [Concomitant]
     Dosage: 1 TAB, QD
  8. METOPROLOL SUCCINATE [Concomitant]

REACTIONS (7)
  - DRUG INEFFECTIVE [None]
  - ELECTROLYTE IMBALANCE [None]
  - HYPERGLYCAEMIA [None]
  - INCREASED APPETITE [None]
  - LIMB INJURY [None]
  - POLYURIA [None]
  - SWELLING FACE [None]
